FAERS Safety Report 15223143 (Version 1)
Quarter: 2018Q3

REPORT INFORMATION
  Report Type: Spontaneous
  Country: US (occurrence: US)
  Receive Date: 20180731
  Receipt Date: 20180731
  Transmission Date: 20181010
  Serious: Yes (Disabling, Other)
  Sender: FDA-Public Use
  Company Number: US-ENDO PHARMACEUTICALS INC-2017-005435

PATIENT
  Age: 43 Year
  Sex: Male
  Weight: 88.43 kg

DRUGS (4)
  1. TESTOPEL [Suspect]
     Active Substance: TESTOSTERONE
     Indication: BLOOD TESTOSTERONE DECREASED
     Dosage: 750 MG (10 PELLETS) AS DIRECTED
     Route: 058
     Dates: start: 2015
  2. ALLEGRA [Concomitant]
     Active Substance: FEXOFENADINE HYDROCHLORIDE
     Indication: PRODUCT USED FOR UNKNOWN INDICATION
  3. TESTOPEL [Suspect]
     Active Substance: TESTOSTERONE
     Indication: HYPOGONADISM
     Dosage: 750 MG (10 PELLETS) AS DIRECTED
     Route: 058
     Dates: start: 20170725
  4. PROTONIX [Concomitant]
     Active Substance: PANTOPRAZOLE SODIUM
     Indication: PRODUCT USED FOR UNKNOWN INDICATION

REACTIONS (6)
  - Expulsion of medication [Recovered/Resolved]
  - Wound [Unknown]
  - Discomfort [Unknown]
  - Pain [Unknown]
  - Prescribed overdose [Unknown]
  - Acne [Unknown]

NARRATIVE: CASE EVENT DATE: 2015
